FAERS Safety Report 25376072 (Version 1)
Quarter: 2025Q2

REPORT INFORMATION
  Report Type: Spontaneous
  Country: GB (occurrence: GB)
  Receive Date: 20250529
  Receipt Date: 20250529
  Transmission Date: 20250716
  Serious: Yes (Other)
  Sender: ELI LILLY AND COMPANY
  Company Number: None

PATIENT
  Age: 64 Year
  Sex: Male

DRUGS (2)
  1. MOUNJARO [Suspect]
     Active Substance: TIRZEPATIDE
     Indication: Blood glucose increased
     Dosage: 2.5 MG, WEEKLY (1/W)
     Route: 065
  2. MOUNJARO [Suspect]
     Active Substance: TIRZEPATIDE
     Indication: Weight control

REACTIONS (13)
  - Arthralgia [Recovering/Resolving]
  - Pain [Recovering/Resolving]
  - Peripheral swelling [Recovering/Resolving]
  - Fall [Recovering/Resolving]
  - Scab [Recovering/Resolving]
  - Pain in extremity [Recovering/Resolving]
  - Tinnitus [Recovering/Resolving]
  - Head discomfort [Recovering/Resolving]
  - Dyspnoea [Recovering/Resolving]
  - Bone pain [Recovering/Resolving]
  - Skin exfoliation [Recovering/Resolving]
  - Neck pain [Recovering/Resolving]
  - Dizziness [Recovering/Resolving]

NARRATIVE: CASE EVENT DATE: 20250428
